FAERS Safety Report 11922956 (Version 4)
Quarter: 2016Q1

REPORT INFORMATION
  Report Type: Report from Study
  Country: US (occurrence: US)
  Receive Date: 20160116
  Receipt Date: 20160309
  Transmission Date: 20160526
  Serious: Yes (Death, Hospitalization, Other)
  Sender: FDA-Public Use
  Company Number: US-BRISTOL-MYERS SQUIBB COMPANY-BMS-2015-087411

PATIENT
  Age: 51 Year
  Sex: Female
  Weight: 55.4 kg

DRUGS (4)
  1. NIVOLUMAB [Suspect]
     Active Substance: NIVOLUMAB
     Dosage: UNK
     Route: 065
     Dates: start: 20151118
  2. IPILIMUMAB [Suspect]
     Active Substance: IPILIMUMAB
     Indication: OVARIAN EPITHELIAL CANCER
     Dosage: 55 MG, TOTAL
     Route: 042
     Dates: start: 20150916
  3. IPILIMUMAB [Suspect]
     Active Substance: IPILIMUMAB
     Dosage: UNK
     Route: 065
     Dates: start: 20151118
  4. NIVOLUMAB [Suspect]
     Active Substance: NIVOLUMAB
     Indication: OVARIAN EPITHELIAL CANCER
     Dosage: 170 MG, TOTAL
     Route: 042
     Dates: start: 20150916

REACTIONS (12)
  - Hypertriglyceridaemia [Recovered/Resolved]
  - Respiratory failure [Fatal]
  - Encephalopathy [Unknown]
  - Haemolytic uraemic syndrome [Unknown]
  - Posterior reversible encephalopathy syndrome [Unknown]
  - Blood bilirubin increased [Unknown]
  - Haemolysis [Unknown]
  - Acute kidney injury [Recovering/Resolving]
  - Urinary tract obstruction [Recovering/Resolving]
  - Anaemia [Recovering/Resolving]
  - Platelet count decreased [Unknown]
  - Lymphocyte count decreased [Recovering/Resolving]

NARRATIVE: CASE EVENT DATE: 20151201
